FAERS Safety Report 7021762 (Version 12)
Quarter: 2012Q4

REPORT INFORMATION
  Report Type: 
  Country: CA (occurrence: CA)
  Receive Date: 20090612
  Receipt Date: 20121109
  Transmission Date: 20130627
  Serious: Yes (Hospitalization, Other)
  Sender: FDA-Public Use
  Company Number: PHMT2006CA01333

PATIENT
  Sex: Female

DRUGS (8)
  1. SANDOSTATIN LAR [Suspect]
     Indication: ACROMEGALY
     Dosage: 20 mg, every 4 weeks
     Route: 030
     Dates: start: 20050628
  2. SANDOSTATIN LAR [Suspect]
     Dosage: 30 mg, every 4 weeks
  3. ALTACE [Concomitant]
  4. CODEINE [Concomitant]
     Dosage: 30 mg, UNK
  5. HYDROCHLOROTHIAZIDE [Concomitant]
  6. AMLODIPINE [Concomitant]
  7. SYNTHROID [Concomitant]
  8. DOSTINEX [Concomitant]

REACTIONS (25)
  - Pericarditis [Unknown]
  - Breast mass [Unknown]
  - Breast disorder [Unknown]
  - Nipple exudate bloody [Recovered/Resolved]
  - Blood pressure increased [Unknown]
  - Abnormal sensation in eye [Recovering/Resolving]
  - Tremor [Unknown]
  - Ocular discomfort [Unknown]
  - Eye pain [Unknown]
  - Neck pain [Unknown]
  - Musculoskeletal pain [Unknown]
  - Crying [Unknown]
  - Blood growth hormone decreased [Unknown]
  - Photophobia [Unknown]
  - Eye swelling [Unknown]
  - Malaise [Unknown]
  - Injection site reaction [Unknown]
  - Eye haemorrhage [Unknown]
  - Tendonitis [Unknown]
  - Flushing [Unknown]
  - Feeling cold [Unknown]
  - Nausea [Unknown]
  - Headache [Recovering/Resolving]
  - Dizziness [Unknown]
  - Asthenia [Unknown]
